FAERS Safety Report 15760810 (Version 1)
Quarter: 2018Q4

REPORT INFORMATION
  Report Type: Spontaneous
  Country: US (occurrence: US)
  Receive Date: 20181226
  Receipt Date: 20181226
  Transmission Date: 20190205
  Serious: Yes (Hospitalization)
  Sender: FDA-Public Use
  Company Number: None

PATIENT
  Sex: Female

DRUGS (18)
  1. SODIUM SOL [Concomitant]
  2. PROTONIX [Concomitant]
     Active Substance: PANTOPRAZOLE SODIUM
  3. FUROSEMIDE. [Concomitant]
     Active Substance: FUROSEMIDE
  4. FERROUS SULFATE. [Concomitant]
     Active Substance: FERROUS SULFATE
  5. BYSTOLIC [Concomitant]
     Active Substance: NEBIVOLOL HYDROCHLORIDE
  6. PREDNISONE. [Concomitant]
     Active Substance: PREDNISONE
  7. XALATAN [Concomitant]
     Active Substance: LATANOPROST
  8. FAMOTIDINE. [Concomitant]
     Active Substance: FAMOTIDINE
  9. SYMBICORT [Concomitant]
     Active Substance: BUDESONIDE\FORMOTEROL FUMARATE DIHYDRATE
  10. PROAIR HFA [Concomitant]
     Active Substance: ALBUTEROL SULFATE
  11. FOLIC ACID. [Concomitant]
     Active Substance: FOLIC ACID
  12. MYRBETRIQ [Concomitant]
     Active Substance: MIRABEGRON
  13. METYHOTREXATE [Concomitant]
  14. CIMZIA [Suspect]
     Active Substance: CERTOLIZUMAB PEGOL
     Indication: PSORIATIC ARTHROPATHY
     Dosage: ?          OTHER FREQUENCY:EVERY 2 WEEKS;?
     Route: 058
     Dates: start: 20180127
  15. MONTELUKAST [Concomitant]
     Active Substance: MONTELUKAST SODIUM
  16. LYRICA [Concomitant]
     Active Substance: PREGABALIN
  17. RESTASIS [Concomitant]
     Active Substance: CYCLOSPORINE
  18. MULTIVITAMIN [Concomitant]
     Active Substance: VITAMINS

REACTIONS (1)
  - Hospitalisation [None]
